FAERS Safety Report 10256674 (Version 1)
Quarter: 2014Q2

REPORT INFORMATION
  Report Type: Report from Study
  Country: US (occurrence: US)
  Receive Date: 20140624
  Receipt Date: 20140624
  Transmission Date: 20141212
  Serious: No
  Sender: FDA-Public Use
  Company Number: PHEH2014US008192

PATIENT
  Sex: 0

DRUGS (1)
  1. OCTREOTIDE [Suspect]
     Dosage: UNK UKN, UNK

REACTIONS (3)
  - Gallbladder disorder [Unknown]
  - Arthralgia [Unknown]
  - Fatigue [Unknown]
